FAERS Safety Report 6510049-0 (Version None)
Quarter: 2009Q4

REPORT INFORMATION
  Report Type: 
  Country: None (occurrence: None)
  Receive Date: 20091222
  Receipt Date: 20091214
  Transmission Date: 20100525
  Serious: Yes (Hospitalization, Other)
  Sender: FDA-Public Use
  Company Number: BR-SANOFI-AVENTIS-2009SA009144

PATIENT
  Sex: Female

DRUGS (13)
  1. LANTUS [Suspect]
     Indication: TYPE 2 DIABETES MELLITUS
     Route: 058
  2. SOLOSTAR [Suspect]
     Indication: TYPE 2 DIABETES MELLITUS
     Dates: start: 20050101
  3. LANTUS [Suspect]
     Indication: TYPE 2 DIABETES MELLITUS
     Route: 058
     Dates: start: 20050101
  4. LANTUS [Suspect]
     Dosage: IN THE MORNING AND AT NIGHT
     Route: 058
  5. OPTIPEN [Suspect]
     Indication: TYPE 2 DIABETES MELLITUS
     Dates: start: 20050101
  6. NOVORAPID [Concomitant]
     Indication: TYPE 2 DIABETES MELLITUS
     Route: 058
     Dates: start: 20050101
  7. LOSARTAN [Concomitant]
     Route: 048
     Dates: start: 20060101
  8. ROXITHROMYCIN [Concomitant]
     Indication: BLOOD PRESSURE
     Dosage: 1 TABLET
     Route: 048
     Dates: start: 20060101
  9. SELOKEN [Concomitant]
     Dosage: 2 TABLETS
     Route: 048
     Dates: start: 20090301
  10. CLOPIDOGREL BISULFATE [Concomitant]
     Dosage: 1 TABLET
     Route: 048
     Dates: start: 20090601
  11. AAS INFANTIL [Concomitant]
     Dosage: 2 TABLETS
     Route: 048
     Dates: start: 20060101
  12. TRYPTANOL /BRA/ [Concomitant]
     Route: 048
     Dates: start: 20030101
  13. BEMINAL [Concomitant]
     Indication: VITAMIN SUPPLEMENTATION
     Dosage: 1 TABLET
     Route: 048
     Dates: start: 20030101

REACTIONS (12)
  - BLINDNESS [None]
  - CHEST DISCOMFORT [None]
  - CORONARY ARTERY OCCLUSION [None]
  - DRUG INEFFECTIVE [None]
  - EYE HAEMORRHAGE [None]
  - FEELING ABNORMAL [None]
  - HYPERGLYCAEMIA [None]
  - HYPERHIDROSIS [None]
  - HYPERTENSION [None]
  - HYPOGLYCAEMIA [None]
  - INJECTION SITE HAEMATOMA [None]
  - VISION BLURRED [None]
